FAERS Safety Report 14629574 (Version 2)
Quarter: 2018Q2

REPORT INFORMATION
  Report Type: Spontaneous
  Country: US (occurrence: US)
  Receive Date: 20180313
  Receipt Date: 20180501
  Transmission Date: 20180711
  Serious: No
  Sender: FDA-Public Use
  Company Number: US-009507513-1803USA004269

PATIENT
  Age: 52 Year
  Sex: Female

DRUGS (2)
  1. STERILE DILUENT (WATER) [Suspect]
     Active Substance: WATER
     Dosage: IN THE RIGHT ARM
     Route: 058
     Dates: start: 20171016
  2. ZOSTAVAX [Suspect]
     Active Substance: VARICELLA-ZOSTER VIRUS STRAIN OKA/MERCK LIVE ANTIGEN
     Indication: PROPHYLAXIS
     Route: 058
     Dates: start: 20171016, end: 20171016

REACTIONS (3)
  - Nodule [Not Recovered/Not Resolved]
  - Injection site nodule [Not Recovered/Not Resolved]
  - Fat necrosis [Not Recovered/Not Resolved]

NARRATIVE: CASE EVENT DATE: 20171016
